FAERS Safety Report 15571445 (Version 1)
Quarter: 2018Q4

REPORT INFORMATION
  Report Type: Spontaneous
  Country: SE (occurrence: SE)
  Receive Date: 20181031
  Receipt Date: 20181031
  Transmission Date: 20190205
  Serious: Yes (Life-Threatening, Other)
  Sender: FDA-Public Use
  Company Number: SE-MYLANLABS-2018M1080951

PATIENT
  Sex: Male

DRUGS (1)
  1. METHYLPHENIDATE MYLAN [Suspect]
     Active Substance: METHYLPHENIDATE HYDROCHLORIDE
     Indication: PRODUCT USED FOR UNKNOWN INDICATION
     Dosage: 18 MG, UNK

REACTIONS (2)
  - Apparent death [Unknown]
  - Adverse drug reaction [Unknown]
